FAERS Safety Report 25188261 (Version 1)
Quarter: 2025Q2

REPORT INFORMATION
  Report Type: Spontaneous
  Country: GB (occurrence: GB)
  Receive Date: 20250411
  Receipt Date: 20250411
  Transmission Date: 20250716
  Serious: Yes (Other)
  Sender: TEVA
  Company Number: None

PATIENT

DRUGS (1)
  1. ROSUVASTATIN [Suspect]
     Active Substance: ROSUVASTATIN
     Indication: Hyperlipidaemia
     Dosage: DAILY DOSE: 5MG; DURATION: 27 DAYS
     Route: 065
     Dates: start: 20250127, end: 20250222

REACTIONS (1)
  - Visual impairment [Recovering/Resolving]
